FAERS Safety Report 14217277 (Version 3)
Quarter: 2017Q4

REPORT INFORMATION
  Report Type: Spontaneous
  Country: US (occurrence: US)
  Receive Date: 20171123
  Receipt Date: 20171123
  Transmission Date: 20180321
  Serious: No
  Sender: FDA-Public Use
  Company Number: PHEH2017US037763

PATIENT

DRUGS (1)
  1. TOBREX [Suspect]
     Active Substance: TOBRAMYCIN
     Indication: HORDEOLUM
     Dosage: UNK
     Route: 047
     Dates: start: 20171106

REACTIONS (5)
  - Eyelid oedema [Unknown]
  - Pain [Unknown]
  - Erythema of eyelid [Unknown]
  - Paraesthesia [Unknown]
  - Blepharitis [Unknown]
